FAERS Safety Report 8943121 (Version 1)
Quarter: 2012Q4

REPORT INFORMATION
  Report Type: 
  Country: FR (occurrence: FR)
  Receive Date: 20121204
  Receipt Date: 20121204
  Transmission Date: 20130627
  Serious: Yes (Hospitalization)
  Sender: FDA-Public Use
  Company Number: PHHY2012FR110213

PATIENT
  Sex: Female

DRUGS (2)
  1. GILENYA [Suspect]
     Dosage: UNK
     Route: 048
     Dates: start: 201111
  2. MICARDIS [Concomitant]
     Indication: HYPERTENSION

REACTIONS (4)
  - Cerebrovascular accident [Unknown]
  - Hemiparesis [Unknown]
  - Haematoma [Unknown]
  - Hypertension [Unknown]
